FAERS Safety Report 6618938-3 (Version None)
Quarter: 2010Q1

REPORT INFORMATION
  Report Type: 
  Country: None (occurrence: None)
  Receive Date: 20100308
  Receipt Date: 20100224
  Transmission Date: 20100710
  Serious: No
  Sender: FDA-Public Use
  Company Number: US-B.I. PHARMACEUTICALS,INC./RIDGEFIELD-2010-BP-02304BP

PATIENT
  Age: 28 Year
  Sex: Male

DRUGS (3)
  1. ZANTAC 150 [Suspect]
     Indication: DYSPEPSIA
     Dosage: 300 MG
     Route: 048
     Dates: start: 20100201
  2. VICODIN [Concomitant]
     Indication: JOINT INJURY
  3. TUMS [Concomitant]
     Indication: DYSPEPSIA
     Dates: end: 20100201

REACTIONS (1)
  - HEADACHE [None]
